FAERS Safety Report 13702378 (Version 3)
Quarter: 2017Q4

REPORT INFORMATION
  Report Type: Report from Study
  Country: None (occurrence: US)
  Receive Date: 20170629
  Receipt Date: 20171117
  Transmission Date: 20180320
  Serious: Yes (Hospitalization, Other)
  Sender: FDA-Public Use
  Company Number: US-ABBVIE-17K-163-2022705-00

PATIENT
  Sex: Male

DRUGS (2)
  1. HUMIRA [Suspect]
     Active Substance: ADALIMUMAB
     Indication: PSORIATIC ARTHROPATHY
     Route: 058
  2. HUMIRA [Suspect]
     Active Substance: ADALIMUMAB
     Indication: RHEUMATOID ARTHRITIS
     Route: 058

REACTIONS (10)
  - Loss of consciousness [Unknown]
  - Diabetic neuropathy [Recovering/Resolving]
  - Syncope [Unknown]
  - Dizziness postural [Unknown]
  - Therapeutic response shortened [Unknown]
  - Asthenia [Unknown]
  - Dyspnoea [Unknown]
  - Drug ineffective [Unknown]
  - Immunodeficiency [Unknown]
  - Influenza [Unknown]

NARRATIVE: CASE EVENT DATE: 2016
